FAERS Safety Report 20311309 (Version 1)
Quarter: 2022Q1

REPORT INFORMATION
  Report Type: Spontaneous
  Country: CA (occurrence: CA)
  Receive Date: 20220107
  Receipt Date: 20220107
  Transmission Date: 20220424
  Serious: Yes (Other)
  Sender: FDA-Public Use
  Company Number: CA-TEVA-2021-CA-1996094

PATIENT
  Age: 64 Year
  Sex: Female

DRUGS (6)
  1. MOMETASONE [Suspect]
     Active Substance: MOMETASONE
     Indication: Product used for unknown indication
     Route: 065
  2. PREDNISONE [Suspect]
     Active Substance: PREDNISONE
     Indication: Product used for unknown indication
     Route: 065
  3. ALBUTEROL [Suspect]
     Active Substance: ALBUTEROL
     Indication: Product used for unknown indication
     Route: 065
  4. FORMOTEROL FUMARATE\MOMETASONE FUROATE [Suspect]
     Active Substance: FORMOTEROL FUMARATE\MOMETASONE FUROATE
     Indication: Product used for unknown indication
     Route: 065
  5. MEPOLIZUMAB [Suspect]
     Active Substance: MEPOLIZUMAB
     Indication: Asthma
     Route: 058
  6. PANTOPRAZOLE MAGNESIUM [Suspect]
     Active Substance: PANTOPRAZOLE MAGNESIUM
     Indication: Product used for unknown indication
     Route: 065

REACTIONS (3)
  - Nasopharyngitis [Not Recovered/Not Resolved]
  - Pneumonia [Not Recovered/Not Resolved]
  - Wheezing [Not Recovered/Not Resolved]
